FAERS Safety Report 9158629 (Version 1)
Quarter: 2013Q1

REPORT INFORMATION
  Report Type: Spontaneous
  Country: GB (occurrence: GB)
  Receive Date: 20130312
  Receipt Date: 20130312
  Transmission Date: 20140127
  Serious: Yes (Hospitalization, Other)
  Sender: FDA-Public Use
  Company Number: PHHY2013GB022292

PATIENT
  Age: 77 Year
  Sex: Male

DRUGS (13)
  1. DEXAMETHASONE [Suspect]
     Indication: DISEASE PROGRESSION
     Dosage: 20 MG, DAYS 1-4, 9-12 AND 17-20
     Dates: start: 201011, end: 201102
  2. WARFARIN [Interacting]
     Indication: PROPHYLAXIS
  3. LENALIDOMIDE [Interacting]
     Indication: DISEASE PROGRESSION
     Dosage: 25 MG, ON DAY 1-21
     Dates: start: 201011, end: 201102
  4. CLOPIDOGREL [Concomitant]
     Dosage: 75 MG, UNK
  5. ASPIRIN [Concomitant]
     Dosage: 75 MG, UNK
  6. ISOSORBIDE MONONITRATE MR [Concomitant]
     Dosage: 60 MG, UNK
  7. ADIZEM SR [Concomitant]
     Dosage: 240 MG, UNK
  8. SODIUM CLODRONATE [Concomitant]
     Dosage: 1.6 G, UNK
  9. OMEPRAZOLE [Concomitant]
     Dosage: 40 MG, UNK
  10. ATORVASTATIN [Concomitant]
     Dosage: 80 MG, UNK
  11. GLYCERYL TRINITRATE [Concomitant]
     Indication: CHEST PAIN
     Dosage: 1-2 PUFF
  12. PARACETAMOL [Concomitant]
     Dosage: 1 G, PRN
  13. ENOXAPARIN SODIUM [Concomitant]
     Dosage: 1.5 MG/KG, UNK

REACTIONS (9)
  - Acute myocardial infarction [Unknown]
  - Chest pain [Unknown]
  - Productive cough [Unknown]
  - Supraventricular extrasystoles [Unknown]
  - Pulmonary embolism [Unknown]
  - Dyspnoea [Unknown]
  - Malignant neoplasm progression [Unknown]
  - Anticoagulation drug level below therapeutic [Unknown]
  - Drug interaction [Unknown]
